APPROVED DRUG PRODUCT: DALFAMPRIDINE
Active Ingredient: DALFAMPRIDINE
Strength: 10MG
Dosage Form/Route: TABLET, EXTENDED RELEASE;ORAL
Application: A210158 | Product #001 | TE Code: AB
Applicant: MICRO LABS LTD
Approved: Mar 11, 2019 | RLD: No | RS: No | Type: RX